FAERS Safety Report 4986724-6 (Version None)
Quarter: 2006Q2

REPORT INFORMATION
  Report Type: 
  Country: None (occurrence: None)
  Receive Date: 20060428
  Receipt Date: 20060104
  Transmission Date: 20061013
  Serious: Yes (Death, Hospitalization)
  Sender: FDA-Public Use
  Company Number: US-MERCK-0601USA00533

PATIENT
  Age: 69 Year
  Sex: Female
  Weight: 100 kg

DRUGS (11)
  1. VIOXX [Suspect]
     Indication: BACK PAIN
     Route: 048
     Dates: start: 20010514, end: 20031128
  2. AMITRIPTYLINE HYDROCHLORIDE [Concomitant]
     Indication: DEPRESSION
     Route: 065
  3. DILTIAZEM HYDROCHLORIDE [Concomitant]
     Route: 065
  4. METOCLOPRAMIDE HYDROCHLORIDE [Concomitant]
     Route: 065
  5. OYSCO [Concomitant]
     Route: 065
  6. ACETAMINOPHEN AND PROPOXYPHENE NAPSYLATE [Concomitant]
     Route: 065
  7. PROTONIX [Concomitant]
     Route: 065
  8. TIZANIDINE HYDROCHLORIDE [Concomitant]
     Route: 065
  9. HYZAAR [Concomitant]
     Route: 065
  10. ATENOLOL [Concomitant]
     Route: 065
     Dates: start: 20010101, end: 20031101
  11. ZOCOR [Concomitant]
     Route: 065
     Dates: start: 20030819, end: 20031101

REACTIONS (2)
  - ARTHROPATHY [None]
  - MYOCARDIAL INFARCTION [None]
